FAERS Safety Report 7561273-X (Version None)
Quarter: 2011Q2

REPORT INFORMATION
  Report Type: 
  Country: None (occurrence: None)
  Receive Date: 20110621
  Receipt Date: 20100524
  Transmission Date: 20111010
  Serious: No
  Sender: FDA-Public Use
  Company Number: US-ASTRAZENECA-2010SE24186

PATIENT
  Age: 62 Year
  Sex: Female

DRUGS (5)
  1. VENTOLIN HFA [Concomitant]
  2. IPRATROPIUM BROMIDE [Concomitant]
  3. ALBUTEROL [Concomitant]
  4. SYMBICORT [Suspect]
     Dosage: 160/4.5
     Route: 055
  5. PULMICORT [Suspect]
     Dosage: 0.5 MG IN 2 ML
     Route: 055

REACTIONS (2)
  - DYSPNOEA [None]
  - DRUG DOSE OMISSION [None]
